FAERS Safety Report 23051931 (Version 3)
Quarter: 2023Q4

REPORT INFORMATION
  Report Type: Spontaneous
  Country: US (occurrence: US)
  Receive Date: 20231010
  Receipt Date: 20231110
  Transmission Date: 20240109
  Serious: No
  Sender: FDA-Public Use
  Company Number: US-Calliditas-2023CAL01293

PATIENT
  Age: 56 Year
  Sex: Male

DRUGS (2)
  1. TARPEYO [Suspect]
     Active Substance: BUDESONIDE
     Indication: IgA nephropathy
     Dosage: 16 MG (4 MG CAPSULES) ONCE DAILY
     Route: 048
     Dates: start: 20230504, end: 20230730
  2. ULORIC [Concomitant]
     Active Substance: FEBUXOSTAT

REACTIONS (5)
  - Gout [Not Recovered/Not Resolved]
  - Headache [Unknown]
  - Prescribed underdose [Unknown]
  - Paraesthesia [Unknown]
  - Asthenia [Unknown]

NARRATIVE: CASE EVENT DATE: 20231019
